FAERS Safety Report 5021094-9 (Version None)
Quarter: 2006Q2

REPORT INFORMATION
  Report Type: 
  Country: None (occurrence: None)
  Receive Date: 20060607
  Receipt Date: 20060607
  Transmission Date: 20061013
  Serious: Yes (Hospitalization, Other)
  Sender: FDA-Public Use
  Company Number: None

PATIENT
  Sex: Female
  Weight: 40.3701 kg

DRUGS (2)
  1. CYCLOPHOSPHAMIDE [Suspect]
     Indication: BREAST CANCER
     Dosage: 1170 MG
     Dates: start: 20060523
  2. DOXORUBICIN HYDROCHLORIDE [Suspect]
     Dosage: 117 MG
     Dates: start: 20060523, end: 20060523

REACTIONS (1)
  - FEBRILE NEUTROPENIA [None]
